FAERS Safety Report 5267519-5 (Version None)
Quarter: 2007Q1

REPORT INFORMATION
  Report Type: 
  Country: None (occurrence: None)
  Receive Date: 20061213
  Receipt Date: 20030903
  Transmission Date: 20070707
  Serious: No
  Sender: FDA-Public Use
  Company Number: 2003UW11213

PATIENT
  Age: 62 Year
  Sex: Female
  Weight: 55.7924 kg

DRUGS (4)
  1. TAMOXIFEN CITRATE [Suspect]
     Indication: BREAST CANCER
  2. FOSAMAX [Concomitant]
  3. MEGACE [Concomitant]
  4. PENTASA [Concomitant]

REACTIONS (1)
  - BREAST CANCER RECURRENT [None]
